FAERS Safety Report 24791405 (Version 1)
Quarter: 2024Q4

REPORT INFORMATION
  Report Type: Spontaneous
  Country: US (occurrence: US)
  Receive Date: 20241231
  Receipt Date: 20241231
  Transmission Date: 20250115
  Serious: Yes (Other)
  Sender: NOVO NORDISK
  Company Number: US-NOVOPROD-1342261

PATIENT
  Age: 72 Year
  Sex: Male

DRUGS (2)
  1. OZEMPIC [Suspect]
     Active Substance: SEMAGLUTIDE
     Indication: Diabetes mellitus
     Dosage: 2 MG
     Route: 058
     Dates: start: 20230209, end: 20241017
  2. NOVOLOG MIX 70/30 [Suspect]
     Active Substance: INSULIN ASPART
     Indication: Diabetes mellitus
     Dosage: 30/15 MG 2 TIMES A DAY
     Route: 058
     Dates: start: 20221006, end: 20240912

REACTIONS (5)
  - Syncope [Recovered/Resolved]
  - Visual impairment [Recovered/Resolved]
  - Asthenia [Recovered/Resolved]
  - Constipation [Recovered/Resolved]
  - Abdominal pain upper [Recovered/Resolved]

NARRATIVE: CASE EVENT DATE: 20240713
